FAERS Safety Report 23416460 (Version 1)
Quarter: 2024Q1

REPORT INFORMATION
  Report Type: Spontaneous
  Country: US (occurrence: None)
  Receive Date: 20240117
  Receipt Date: 20240117
  Transmission Date: 20240409
  Serious: No
  Sender: FDA-Public Use
  Company Number: None

PATIENT
  Age: 62 Year
  Sex: Female
  Weight: 50.85 kg

DRUGS (4)
  1. LEFLUNOMIDE [Suspect]
     Active Substance: LEFLUNOMIDE
     Indication: Rheumatoid arthritis
     Dosage: OTHER QUANTITY : .5 TABLET(S);?FREQUENCY : DAILY;?
     Route: 048
     Dates: start: 20230601, end: 20240107
  2. ENBREL [Concomitant]
     Active Substance: ETANERCEPT
  3. REPATHA [Concomitant]
     Active Substance: EVOLOCUMAB
  4. VITAMIN D [Concomitant]
     Active Substance: VITAMIN D NOS

REACTIONS (2)
  - Alopecia [None]
  - Therapy cessation [None]

NARRATIVE: CASE EVENT DATE: 20231222
